FAERS Safety Report 5797658-1 (Version None)
Quarter: 2008Q2

REPORT INFORMATION
  Report Type: 
  Country: None (occurrence: None)
  Receive Date: 20080618
  Receipt Date: 20070830
  Transmission Date: 20081010
  Serious: Yes (Other)
  Sender: FDA-Public Use
  Company Number: 200714231US

PATIENT
  Age: 68 Year
  Sex: Female

DRUGS (11)
  1. LANTUS [Suspect]
     Indication: TYPE 2 DIABETES MELLITUS
     Dosage: 30 U
     Dates: start: 20050901
  2. LANTUS [Suspect]
     Indication: TYPE 2 DIABETES MELLITUS
     Dosage: 25 U
     Dates: start: 20050901
  3. OPTICLIK GREY [Suspect]
     Indication: TYPE 2 DIABETES MELLITUS
     Dates: start: 20050901
  4. METFORMIN HCL [Concomitant]
  5. GLYBURIDE [Concomitant]
  6. LISINOPRIL [Concomitant]
  7. LIPITOR [Concomitant]
  8. VITAMINS NOS (MVI) [Concomitant]
  9. CALCIUM [Concomitant]
  10. NAPROXEN SODIUM (ALEVE /00256202/) [Concomitant]
  11. ACETAMINOPHEN [Concomitant]

REACTIONS (5)
  - BLOOD GLUCOSE INCREASED [None]
  - FEELING ABNORMAL [None]
  - GLYCOSYLATED HAEMOGLOBIN INCREASED [None]
  - HYPOGLYCAEMIA [None]
  - NERVOUSNESS [None]
